FAERS Safety Report 7719330-0 (Version None)
Quarter: 2011Q3

REPORT INFORMATION
  Report Type: 
  Country: None (occurrence: None)
  Receive Date: 20110830
  Receipt Date: 20110818
  Transmission Date: 20111222
  Serious: Yes (Other)
  Sender: FDA-Public Use
  Company Number: CA-JNJFOC-20110609101

PATIENT
  Sex: Female
  Weight: 61.4 kg

DRUGS (12)
  1. RENEDIL [Concomitant]
  2. DESLORATADINE [Concomitant]
     Indication: PREMEDICATION
     Route: 048
     Dates: start: 20110616
  3. TYLENOL-500 [Concomitant]
     Indication: PREMEDICATION
     Route: 048
     Dates: start: 20110616
  4. METHOTREXATE [Concomitant]
  5. DIOVAN [Concomitant]
  6. REMICADE [Suspect]
     Indication: RHEUMATOID ARTHRITIS
     Route: 042
     Dates: start: 20110616
  7. FERROUS SULFATE TAB [Concomitant]
  8. SINEQUAN [Concomitant]
  9. FOLIC ACID [Concomitant]
  10. REMICADE [Suspect]
     Route: 042
     Dates: start: 20051101, end: 20110201
  11. PLAQUENIL [Concomitant]
  12. OGEN [Concomitant]

REACTIONS (5)
  - PLEURAL DISORDER [None]
  - INFUSION RELATED REACTION [None]
  - CARDIAC DISORDER [None]
  - THROAT IRRITATION [None]
  - FLUSHING [None]
